FAERS Safety Report 4384185-1 (Version None)
Quarter: 2004Q2

REPORT INFORMATION
  Report Type: 
  Country: None (occurrence: None)
  Receive Date: 20040621
  Receipt Date: 20040609
  Transmission Date: 20050107
  Serious: Yes (Other)
  Sender: FDA-Public Use
  Company Number: 2004198126JP

PATIENT
  Age: 79 Year
  Sex: Female

DRUGS (8)
  1. CABERGOLINE [Suspect]
     Indication: PARKINSON'S DISEASE
     Dosage: SEE IMAGE ORAL
     Route: 048
     Dates: start: 20031031, end: 20040128
  2. CABERGOLINE [Suspect]
     Indication: PARKINSON'S DISEASE
     Dosage: SEE IMAGE ORAL
     Route: 048
     Dates: start: 20040322, end: 20040519
  3. DILTIAZEM HYDROCHLORIDE [Concomitant]
  4. LOSARTAN POTASSIUM [Concomitant]
  5. DIART (AZOSEMIDE) [Concomitant]
  6. ALDACTONE [Concomitant]
  7. PRAVASTATIN SODIUM [Concomitant]
  8. MAGNESIUM OXIDE [Concomitant]

REACTIONS (6)
  - COGNITIVE DISORDER [None]
  - DELUSION [None]
  - DEMENTIA [None]
  - NASOPHARYNGEAL DISORDER [None]
  - PARAESTHESIA ORAL [None]
  - PERSONALITY CHANGE [None]
